FAERS Safety Report 10248779 (Version 1)
Quarter: 2014Q2

REPORT INFORMATION
  Report Type: Spontaneous
  Country: US (occurrence: US)
  Receive Date: 20140620
  Receipt Date: 20140620
  Transmission Date: 20141212
  Serious: No
  Sender: FDA-Public Use
  Company Number: US-009507513-1406USA006874

PATIENT
  Sex: Female
  Weight: 82 kg

DRUGS (1)
  1. NEXPLANON [Suspect]
     Dosage: 1 ROD EVERY 3 YEARS
     Route: 059
     Dates: start: 20140610

REACTIONS (4)
  - Device difficult to use [Unknown]
  - Medical device removal [Unknown]
  - Device deployment issue [Unknown]
  - No adverse event [Unknown]
